FAERS Safety Report 17200605 (Version 1)
Quarter: 2019Q4

REPORT INFORMATION
  Report Type: Spontaneous
  Country: US (occurrence: US)
  Receive Date: 20191226
  Receipt Date: 20191226
  Transmission Date: 20200122
  Serious: Yes (Hospitalization, Other)
  Sender: FDA-Public Use
  Company Number: US-ALKEM LABORATORIES LIMITED-US-ALKEM-2019-07145

PATIENT
  Age: 59 Year
  Sex: Female

DRUGS (2)
  1. MYCOPHENOLATE MOFETIL. [Suspect]
     Active Substance: MYCOPHENOLATE MOFETIL
     Indication: IMMUNOSUPPRESSION
     Dosage: UNK
     Route: 065
     Dates: start: 2011
  2. TACROLIMUS. [Suspect]
     Active Substance: TACROLIMUS
     Indication: IMMUNOSUPPRESSION
     Dosage: UNK
     Route: 065
     Dates: start: 2011

REACTIONS (9)
  - Tuberculosis gastrointestinal [Recovering/Resolving]
  - Mycobacterial infection [Recovering/Resolving]
  - Duodenal perforation [Recovering/Resolving]
  - Candida infection [Unknown]
  - Acid fast bacilli infection [Recovering/Resolving]
  - Disseminated tuberculosis [Recovering/Resolving]
  - Mesenteric abscess [Recovering/Resolving]
  - Osteomyelitis [Recovering/Resolving]
  - Joint tuberculosis [Recovering/Resolving]
